FAERS Safety Report 13583271 (Version 7)
Quarter: 2018Q1

REPORT INFORMATION
  Report Type: Report from Study
  Country: JP (occurrence: JP)
  Receive Date: 20170525
  Receipt Date: 20180307
  Transmission Date: 20180508
  Serious: Yes (Hospitalization, Other)
  Sender: FDA-Public Use
  Company Number: JP-B.I. PHARMACEUTICALS,INC./RIDGEFIELD-2017-NB-002878

PATIENT
  Age: 68 Year
  Sex: Female
  Weight: 44.2 kg

DRUGS (3)
  1. PRAZAXA [Suspect]
     Active Substance: DABIGATRAN ETEXILATE MESYLATE
     Indication: ATRIAL FIBRILLATION
     Route: 048
     Dates: start: 20170518, end: 20170521
  2. ASPIRIN. [Concomitant]
     Active Substance: ASPIRIN
     Indication: PRODUCT USED FOR UNKNOWN INDICATION
     Route: 048
  3. TSUMURA DAIKENCHUTO EXTRACT GRANULES FOR ETHICAL USE [Suspect]
     Active Substance: HERBALS
     Indication: PRODUCT USED FOR UNKNOWN INDICATION
     Route: 065
     Dates: end: 20170601

REACTIONS (8)
  - Brain oedema [Unknown]
  - Hyponatraemia [Recovered/Resolved]
  - Drug-induced liver injury [Recovered/Resolved]
  - Haemorrhagic cerebral infarction [Unknown]
  - Hydrocephalus [Unknown]
  - Pneumonia aspiration [Recovered/Resolved]
  - Drug effect incomplete [Unknown]
  - Vascular parkinsonism [Not Recovered/Not Resolved]

NARRATIVE: CASE EVENT DATE: 20170521
